FAERS Safety Report 25277240 (Version 3)
Quarter: 2025Q2

REPORT INFORMATION
  Report Type: Spontaneous
  Country: US (occurrence: US)
  Receive Date: 20250507
  Receipt Date: 20250515
  Transmission Date: 20250716
  Serious: Yes (Death, Other)
  Sender: ROCHE
  Company Number: US-ROCHE-10000275653

PATIENT
  Sex: Female

DRUGS (9)
  1. OCREVUS [Suspect]
     Active Substance: OCRELIZUMAB
     Indication: Secondary progressive multiple sclerosis
     Route: 065
     Dates: start: 202101, end: 20241226
  2. DEPAKOTE [Concomitant]
     Active Substance: DIVALPROEX SODIUM
  3. WELLBUTRIN [Concomitant]
     Active Substance: BUPROPION HYDROCHLORIDE
  4. BUSPAR [Concomitant]
     Active Substance: BUSPIRONE HYDROCHLORIDE
  5. SYNTHROID [Concomitant]
     Active Substance: LEVOTHYROXINE SODIUM
  6. PROZAC [Concomitant]
     Active Substance: FLUOXETINE HYDROCHLORIDE
  7. OXYBUTYNIN [Concomitant]
     Active Substance: OXYBUTYNIN
  8. IMITREX [Concomitant]
     Active Substance: SUMATRIPTAN SUCCINATE
  9. UBRELVY [Concomitant]
     Active Substance: UBROGEPANT

REACTIONS (2)
  - Pneumonia [Fatal]
  - Sepsis [Unknown]
